FAERS Safety Report 23147535 (Version 1)
Quarter: 2023Q4

REPORT INFORMATION
  Report Type: Spontaneous
  Country: US (occurrence: US)
  Receive Date: 20231106
  Receipt Date: 20231106
  Transmission Date: 20240110
  Serious: Yes (Hospitalization, Other)
  Sender: FDA-Public Use
  Company Number: US-AIMMUNE THERAPEUTICS, INC.-2023AIMT01175

PATIENT

DRUGS (4)
  1. VOWST [Suspect]
     Active Substance: DONOR HUMAN STOOL SPORES (ETHANOL TREATED)
     Indication: Clostridium difficile infection
     Dosage: 4 CAPSULES, 1X/DAY
     Route: 048
     Dates: start: 202308, end: 202308
  2. VOWST [Suspect]
     Active Substance: DONOR HUMAN STOOL SPORES (ETHANOL TREATED)
     Dosage: 4 CAPSULES, ONCE, LAST DOSE PRIOR EVENT
     Route: 048
     Dates: start: 202308, end: 202308
  3. SALT [Concomitant]
     Active Substance: SODIUM CHLORIDE
     Indication: Inappropriate antidiuretic hormone secretion
     Dosage: 9G TAKEN ONCE DAILY BY MOUTH
     Dates: start: 202302
  4. CELEBREX [Concomitant]
     Active Substance: CELECOXIB
     Indication: Inappropriate antidiuretic hormone secretion
     Dosage: UNKNOWN DOSE TAKEN ONCE DAILY BY
     Dates: start: 202302

REACTIONS (1)
  - Brain oedema [Not Recovered/Not Resolved]

NARRATIVE: CASE EVENT DATE: 20231023
